FAERS Safety Report 14927847 (Version 1)
Quarter: 2018Q2

REPORT INFORMATION
  Report Type: Spontaneous
  Country: JP (occurrence: JP)
  Receive Date: 20180523
  Receipt Date: 20180523
  Transmission Date: 20180711
  Serious: Yes (Death)
  Sender: FDA-Public Use
  Company Number: JP-BAYER-2018-095751

PATIENT
  Age: 28 Year
  Sex: Female

DRUGS (5)
  1. BERAPROST [Concomitant]
     Active Substance: BERAPROST
  2. FLOLAN [Concomitant]
     Active Substance: EPOPROSTENOL SODIUM
  3. ADEMPAS [Suspect]
     Active Substance: RIOCIGUAT
     Indication: PULMONARY HYPERTENSION
  4. OPSUMIT [Concomitant]
     Active Substance: MACITENTAN
  5. ADEMPAS [Suspect]
     Active Substance: RIOCIGUAT
     Indication: HAEMODYNAMIC INSTABILITY
     Dosage: UNK, TID
     Route: 048

REACTIONS (1)
  - Pulmonary hypertension [Fatal]
